FAERS Safety Report 23223339 (Version 1)
Quarter: 2023Q4

REPORT INFORMATION
  Report Type: Report from Study
  Country: CH (occurrence: CH)
  Receive Date: 20231123
  Receipt Date: 20231123
  Transmission Date: 20240110
  Serious: Yes (Death)
  Sender: FDA-Public Use
  Company Number: CH-ABBVIE-20K-151-3425082-00

PATIENT
  Sex: Male
  Weight: 69 kg

DRUGS (18)
  1. CARBIDOPA\LEVODOPA [Suspect]
     Active Substance: CARBIDOPA\LEVODOPA
     Indication: Parkinson^s disease
     Dosage: MD: 10 ML, CRD: 6 ML/H, CRN: 3.2 ML/H, ED: 2 ML
     Route: 050
     Dates: start: 20230807, end: 20231117
  2. CARBIDOPA\LEVODOPA [Suspect]
     Active Substance: CARBIDOPA\LEVODOPA
     Route: 050
     Dates: start: 20200128, end: 20200331
  3. CARBIDOPA\LEVODOPA [Suspect]
     Active Substance: CARBIDOPA\LEVODOPA
     Dosage: MD: 7ML,?CRD: 5.4 ML/H,?CRN: 2 ML/H,?24 H THERAPY?EXTRA DOSE: 2 ML
     Route: 050
     Dates: start: 20200331, end: 20200403
  4. CARBIDOPA\LEVODOPA [Suspect]
     Active Substance: CARBIDOPA\LEVODOPA
     Dosage: MD: 8ML,?CRD: 5.4 ML/H,?CRN: 2 ML/H,?24 H THERAPY?EXTRA DOSE: 2 ML
     Route: 050
     Dates: start: 20200403, end: 20200529
  5. CARBIDOPA\LEVODOPA [Suspect]
     Active Substance: CARBIDOPA\LEVODOPA
     Dosage: MORNING DOSE: 6 ML, ?CD RATE DAY: 6 ML/H, ?CRN: 3.2 ML/H, ?EXTRA DOSE: 2 ML
     Route: 050
     Dates: start: 20230106, end: 20230807
  6. CARBIDOPA\LEVODOPA [Suspect]
     Active Substance: CARBIDOPA\LEVODOPA
     Dosage: MD:10 ML,?CRD: 5.4 ML/H,?CRN: 2.5 ML/H, ?EXTRA DOSE: 2 ML, 24 H THERAPY?DOSE INCREASED
     Route: 050
     Dates: start: 20200529, end: 20200715
  7. CARBIDOPA\LEVODOPA [Suspect]
     Active Substance: CARBIDOPA\LEVODOPA
     Dosage: MORNING DOSE:10 ML,?CD RATE DAY: 5.4 ML/H,?CD RATE NIGHT: 3 ML/H,?EXTRA DOSE: 2 ML
     Route: 050
     Dates: start: 20200715
  8. CARBIDOPA\LEVODOPA [Suspect]
     Active Substance: CARBIDOPA\LEVODOPA
     Dosage: MORNING DOSE:10 ML,?CD RATE DAY: 5.6 ML/H,?CRN: 0 ML/H,?EXTRA DOSE: 2 ML
     Route: 050
     Dates: start: 20220307, end: 20220512
  9. CARBIDOPA\LEVODOPA [Suspect]
     Active Substance: CARBIDOPA\LEVODOPA
     Dosage: MORNING DOSE:10 ML,?CD RATE DAY: 5.6 ML/H,?CRN: 3.2 ML/H,?EXTRA DOSE: 2 ML?DOSE INCREASED
     Route: 050
     Dates: start: 20220512, end: 20230106
  10. EXELON [Concomitant]
     Active Substance: RIVASTIGMINE TARTRATE
     Indication: Product used for unknown indication
  11. CIPRALEX [Concomitant]
     Active Substance: ESCITALOPRAM OXALATE
     Indication: Product used for unknown indication
     Dosage: 10 MILLIGRAM
  12. PANTOPRAZOLE SODIUM [Concomitant]
     Active Substance: PANTOPRAZOLE SODIUM
     Indication: Product used for unknown indication
  13. ASPIRIN [Concomitant]
     Active Substance: ASPIRIN
     Indication: Product used for unknown indication
  14. TAMSUNAX [Concomitant]
     Indication: Product used for unknown indication
  15. CLOPIDOGREL [Concomitant]
     Active Substance: CLOPIDOGREL BISULFATE
     Indication: Product used for unknown indication
     Dosage: 40 MILLIGRAM
  16. TORSEMIDE [Concomitant]
     Active Substance: TORSEMIDE
     Indication: Product used for unknown indication
  17. ATORVASTATIN [Concomitant]
     Active Substance: ATORVASTATIN
     Indication: Product used for unknown indication
     Dosage: IN THE EVENING
  18. MIRABEGRON [Concomitant]
     Active Substance: MIRABEGRON
     Indication: Product used for unknown indication

REACTIONS (34)
  - Death [Fatal]
  - Underdose [Recovering/Resolving]
  - Musculoskeletal stiffness [Recovered/Resolved]
  - Enteral nutrition [Not Recovered/Not Resolved]
  - Vertigo [Not Recovered/Not Resolved]
  - Bedridden [Not Recovered/Not Resolved]
  - Muscle contracture [Not Recovered/Not Resolved]
  - Parkinsonian gait [Not Recovered/Not Resolved]
  - General physical health deterioration [Not Recovered/Not Resolved]
  - Urinary incontinence [Not Recovered/Not Resolved]
  - Enteral nutrition [Not Recovered/Not Resolved]
  - Device dislocation [Not Recovered/Not Resolved]
  - Headache [Not Recovered/Not Resolved]
  - Off label use [Not Recovered/Not Resolved]
  - Diplopia [Not Recovered/Not Resolved]
  - Dementia [Not Recovered/Not Resolved]
  - Stoma site hypergranulation [Not Recovered/Not Resolved]
  - Vomiting [Not Recovered/Not Resolved]
  - Therapeutic product effect incomplete [Not Recovered/Not Resolved]
  - Prostatic disorder [Not Recovered/Not Resolved]
  - Micturition disorder [Not Recovered/Not Resolved]
  - Device issue [Recovered/Resolved]
  - Weight decreased [Recovered/Resolved]
  - Decreased appetite [Unknown]
  - Cognitive disorder [Not Recovered/Not Resolved]
  - Hallucination [Recovering/Resolving]
  - Freezing phenomenon [Recovered/Resolved]
  - Urinary retention [Not Recovered/Not Resolved]
  - Bladder catheterisation [Not Recovered/Not Resolved]
  - Akinesia [Unknown]
  - Aphasia [Not Recovered/Not Resolved]
  - Immobile [Not Recovered/Not Resolved]
  - Hypophagia [Unknown]
  - Fluid intake reduced [Unknown]

NARRATIVE: CASE EVENT DATE: 20200101
